FAERS Safety Report 6122862-2 (Version None)
Quarter: 2009Q1

REPORT INFORMATION
  Report Type: 
  Country: None (occurrence: None)
  Receive Date: 20090318
  Receipt Date: 20090312
  Transmission Date: 20090719
  Serious: Yes (Hospitalization)
  Sender: FDA-Public Use
  Company Number: B0564654A

PATIENT
  Age: 51 Year
  Sex: Female

DRUGS (14)
  1. ARIXTRA [Suspect]
     Indication: PROPHYLAXIS
     Dosage: 7.5MG PER DAY
     Route: 058
     Dates: start: 20080729, end: 20080802
  2. CLAMOXYL [Suspect]
     Dosage: 1G FOUR TIMES PER DAY
     Route: 042
     Dates: start: 20080803, end: 20080803
  3. AUGMENTIN '125' [Suspect]
     Dosage: 1G THREE TIMES PER DAY
     Route: 048
     Dates: start: 20080725, end: 20080802
  4. PENICILLIN G [Suspect]
     Route: 042
     Dates: start: 20080730, end: 20080801
  5. GENTALLINE [Suspect]
     Dosage: 80MG TWICE PER DAY
     Route: 042
     Dates: start: 20080803, end: 20080803
  6. MOPRAL [Suspect]
     Indication: PROPHYLAXIS
     Route: 042
     Dates: start: 20080802, end: 20080802
  7. DALACINE [Suspect]
     Dosage: 1UNIT THREE TIMES PER DAY
     Route: 048
     Dates: start: 20080725, end: 20080802
  8. TOPALGIC ( FRANCE ) [Suspect]
     Indication: PAIN
     Dosage: 1G THREE TIMES PER DAY
     Route: 048
     Dates: start: 20080728, end: 20080802
  9. ACUPAN [Suspect]
     Indication: PAIN
     Route: 042
     Dates: start: 20080728, end: 20080806
  10. DOLIPRANE [Concomitant]
     Indication: PAIN
     Dosage: 1000MG FOUR TIMES PER DAY
     Route: 048
     Dates: start: 20080803
  11. PERFALGAN [Concomitant]
     Indication: PAIN
     Dosage: 1G PER DAY
     Route: 042
     Dates: start: 20080802, end: 20080803
  12. LOVENOX [Concomitant]
     Indication: PROPHYLAXIS
     Dosage: 4000IU PER DAY
     Route: 058
     Dates: start: 20080723, end: 20080728
  13. INIPOMP [Concomitant]
     Indication: PROPHYLAXIS
     Dosage: 1UNIT PER DAY
     Route: 048
     Dates: start: 20080803
  14. FLAGYL [Concomitant]
     Indication: DRUG USE FOR UNKNOWN INDICATION
     Dosage: 1500MG PER DAY
     Route: 048
     Dates: start: 20080803, end: 20080828

REACTIONS (10)
  - ACUTE GENERALISED EXANTHEMATOUS PUSTULOSIS [None]
  - DIARRHOEA [None]
  - GASTRIC ULCER HAEMORRHAGE [None]
  - HAEMOGLOBIN DECREASED [None]
  - MELAENA [None]
  - PYREXIA [None]
  - RASH [None]
  - RASH MACULO-PAPULAR [None]
  - RASH PUSTULAR [None]
  - SHOCK HAEMORRHAGIC [None]
